FAERS Safety Report 17527906 (Version 1)
Quarter: 2020Q1

REPORT INFORMATION
  Report Type: Spontaneous
  Country: US (occurrence: US)
  Receive Date: 20200311
  Receipt Date: 20200311
  Transmission Date: 20200409
  Serious: Yes (Other)
  Sender: FDA-Public Use
  Company Number: US-BAYER-2020-040612

PATIENT
  Age: 37 Year
  Sex: Male

DRUGS (3)
  1. ACETYLSALICYLIC ACID [Interacting]
     Active Substance: ASPIRIN
  2. WARFARIN [Interacting]
     Active Substance: WARFARIN
  3. CIPROFLOXACIN. [Suspect]
     Active Substance: CIPROFLOXACIN

REACTIONS (4)
  - Labelled drug-drug interaction medication error [None]
  - Product use in unapproved indication [None]
  - Off label use [None]
  - Subarachnoid haemorrhage [None]
